FAERS Safety Report 19642764 (Version 1)
Quarter: 2021Q3

REPORT INFORMATION
  Report Type: Spontaneous
  Country: US (occurrence: US)
  Receive Date: 20210730
  Receipt Date: 20210730
  Transmission Date: 20211014
  Serious: Yes (Other)
  Sender: FDA-Public Use
  Company Number: US-PFIZER INC-202100928269

PATIENT
  Age: 57 Year
  Sex: Female
  Weight: 46.72 kg

DRUGS (1)
  1. NEURONTIN [Suspect]
     Active Substance: GABAPENTIN
     Indication: EPILEPSY
     Dosage: 5.5ML 7AM, 5.5ML 3PM AND 10ML AND 11PM. EXACTLY 8 HOURS APART
     Dates: start: 201911

REACTIONS (6)
  - Gingival pain [Unknown]
  - Weight decreased [Unknown]
  - Drug level increased [Unknown]
  - Lyme disease [Unknown]
  - Choking [Unknown]
  - Feeding disorder [Unknown]
